FAERS Safety Report 19381719 (Version 1)
Quarter: 2021Q2

REPORT INFORMATION
  Report Type: Spontaneous
  Country: NL (occurrence: FR)
  Receive Date: 20210607
  Receipt Date: 20210607
  Transmission Date: 20210717
  Serious: Yes (Hospitalization)
  Sender: FDA-Public Use
  Company Number: FR-FRESENIUS KABI-FK202105640

PATIENT
  Age: 62 Year
  Sex: Female

DRUGS (2)
  1. FLUOROURACIL. [Suspect]
     Active Substance: FLUOROURACIL
     Indication: COLORECTAL CANCER
     Dosage: 1 CURE / 3 WEEKS
     Route: 042
     Dates: start: 20201113, end: 20201204
  2. IRINOTECAN (MANUFACTURER UNKNOWN) [Suspect]
     Active Substance: IRINOTECAN
     Indication: COLORECTAL CANCER
     Dosage: 1 CURE / 3 WEEKS
     Route: 042
     Dates: start: 20201113, end: 20201204

REACTIONS (3)
  - Condition aggravated [Recovering/Resolving]
  - Cholestasis [Recovering/Resolving]
  - Hepatic cytolysis [Recovering/Resolving]

NARRATIVE: CASE EVENT DATE: 20201217
